FAERS Safety Report 22003541 (Version 1)
Quarter: 2023Q1

REPORT INFORMATION
  Report Type: Spontaneous
  Country: CN (occurrence: CN)
  Receive Date: 20230217
  Receipt Date: 20230217
  Transmission Date: 20230417
  Serious: Yes (Hospitalization)
  Sender: FDA-Public Use
  Company Number: CN-STRIDES ARCOLAB LIMITED-2023SP002389

PATIENT
  Age: 56 Year
  Sex: Male

DRUGS (8)
  1. PREDNISOLONE [Suspect]
     Active Substance: PREDNISOLONE
     Indication: Myocarditis
     Dosage: 2 MILLIGRAM/KILOGRAM
     Route: 065
  2. DOXORUBICIN [Suspect]
     Active Substance: DOXORUBICIN
     Indication: Thymic cancer metastatic
     Dosage: UNK, CYCLICAL (THREE CYCLES)
     Route: 065
  3. ATROPINE [Suspect]
     Active Substance: ATROPINE
     Indication: Myocarditis
     Dosage: UNK
     Route: 065
  4. CYCLOPHOSPHAMIDE [Concomitant]
     Active Substance: CYCLOPHOSPHAMIDE
     Indication: Thymic cancer metastatic
     Dosage: UNK, CYCLICAL (THREE CYCLES)
     Route: 065
  5. CISPLATIN [Concomitant]
     Active Substance: CISPLATIN
     Indication: Thymic cancer metastatic
     Dosage: UNK, CYCLICAL (THREE CYCLES)
     Route: 065
  6. SINTILIMAB [Concomitant]
     Active Substance: SINTILIMAB
     Indication: Thymic cancer metastatic
     Dosage: UNK
     Route: 065
  7. PACLITAXEL [Concomitant]
     Active Substance: PACLITAXEL
     Indication: Thymic cancer metastatic
     Dosage: UNK, CYCLICAL (5 CYCLES)
     Route: 065
  8. CARBOPLATIN [Concomitant]
     Active Substance: CARBOPLATIN
     Indication: Thymic cancer metastatic
     Dosage: UNK, CYCLICAL (5 CYCLES)
     Route: 065

REACTIONS (3)
  - Cardiac failure acute [Unknown]
  - Drug ineffective [Unknown]
  - Off label use [Unknown]
